FAERS Safety Report 5318865-8 (Version None)
Quarter: 2007Q1

REPORT INFORMATION
  Report Type: 
  Country: None (occurrence: None)
  Receive Date: 20070201
  Receipt Date: 20061220
  Transmission Date: 20070707
  Serious: No
  Sender: FDA-Public Use
  Company Number: VNL_0348_2006

PATIENT
  Age: 60 Year
  Sex: Female
  Weight: 49.8957 kg

DRUGS (7)
  1. APOKYN [Suspect]
     Indication: PARKINSON'S DISEASE
     Dosage: 0.15 ML PRN SC
     Route: 058
  2. FLORINEF [Concomitant]
  3. LEXAPRO [Concomitant]
  4. REQUIP [Concomitant]
  5. TEMAZEPAM [Concomitant]
  6. COMTAN [Concomitant]
  7. CARBIDOPA AND LEVODOPA [Concomitant]

REACTIONS (2)
  - DRUG INEFFECTIVE [None]
  - PHARMACEUTICAL PRODUCT COMPLAINT [None]
